FAERS Safety Report 10528154 (Version 1)
Quarter: 2014Q4

REPORT INFORMATION
  Report Type: Spontaneous
  Country: US (occurrence: None)
  Receive Date: 20141014
  Receipt Date: 20141014
  Transmission Date: 20150528
  Serious: Yes (Other)
  Sender: FDA-Public Use
  Company Number: VAL_03437_2014

PATIENT
  Sex: Female

DRUGS (10)
  1. DOCUSATE SODIUM. [Concomitant]
     Active Substance: DOCUSATE SODIUM
  2. BICILLIN [Concomitant]
     Active Substance: PENICILLIN G BENZATHINE
  3. TUMS [Concomitant]
     Active Substance: CALCIUM CARBONATE
  4. LORATADINE. [Concomitant]
     Active Substance: LORATADINE
  5. EPOGEN [Concomitant]
     Active Substance: ERYTHROPOIETIN
  6. NUTROPIN AQ [Suspect]
     Active Substance: SOMATROPIN
     Indication: BODY HEIGHT BELOW NORMAL
     Route: 058
  7. RENVELA [Concomitant]
     Active Substance: SEVELAMER CARBONATE
  8. SENSIPAR [Concomitant]
     Active Substance: CINACALCET HYDROCHLORIDE
  9. CALCITROL [Suspect]
     Active Substance: CALCITRIOL
     Indication: PRODUCT USED FOR UNKNOWN INDICATION
     Route: 048
  10. FOLIC ACID. [Concomitant]
     Active Substance: FOLIC ACID

REACTIONS (1)
  - Chronic kidney disease [None]

NARRATIVE: CASE EVENT DATE: 2012
